FAERS Safety Report 23557408 (Version 1)
Quarter: 2024Q1

REPORT INFORMATION
  Report Type: Report from Study
  Country: PL (occurrence: PL)
  Receive Date: 20240223
  Receipt Date: 20240223
  Transmission Date: 20240410
  Serious: Yes (Other)
  Sender: FDA-Public Use
  Company Number: PL-Accord-407764

PATIENT
  Age: 36 Year
  Sex: Female

DRUGS (1)
  1. LEVETIRACETAM [Suspect]
     Active Substance: LEVETIRACETAM
     Indication: Seizure

REACTIONS (3)
  - Maternal exposure during pregnancy [Unknown]
  - Condition aggravated [Recovered/Resolved]
  - Seizure [Recovered/Resolved]
